FAERS Safety Report 5618754-5 (Version None)
Quarter: 2008Q1

REPORT INFORMATION
  Report Type: 
  Country: None (occurrence: None)
  Receive Date: 20080207
  Receipt Date: 20080129
  Transmission Date: 20080703
  Serious: Yes (Hospitalization)
  Sender: FDA-Public Use
  Company Number: PT-PFIZER INC-2008007932

PATIENT
  Age: 52 Year
  Sex: Female

DRUGS (5)
  1. LYRICA [Suspect]
     Indication: NEURALGIA
     Route: 048
     Dates: start: 20080117, end: 20080121
  2. ASPIRIN [Concomitant]
     Route: 048
  3. ALL OTHER THERAPEUTIC PRODUCTS [Concomitant]
     Route: 048
  4. PARACETAMOL [Concomitant]
     Route: 048
  5. ANTIINFLAMMATORY/ANTIRHEUMATIC PRODUCTS [Concomitant]
     Route: 048

REACTIONS (7)
  - ANURIA [None]
  - DEHYDRATION [None]
  - FLUID RETENTION [None]
  - HYPOXIA [None]
  - METABOLIC ACIDOSIS [None]
  - OLIGURIA [None]
  - VOMITING [None]
